FAERS Safety Report 4480396-5 (Version None)
Quarter: 2004Q4

REPORT INFORMATION
  Report Type: 
  Country: None (occurrence: None)
  Receive Date: 20041018
  Receipt Date: 20041005
  Transmission Date: 20050328
  Serious: Yes (Disabling)
  Sender: FDA-Public Use
  Company Number: 2004075232

PATIENT
  Age: 61 Year
  Sex: Male
  Weight: 72 kg

DRUGS (1)
  1. LIPITOR [Suspect]
     Indication: LIPIDS INCREASED
     Dosage: 20 MG (20 MG, 1 IN 1 D), ORAL
     Route: 048
     Dates: start: 19991213, end: 20030523

REACTIONS (8)
  - ARTHRALGIA [None]
  - ASTHENIA [None]
  - FATIGUE [None]
  - LOCALISED OSTEOARTHRITIS [None]
  - LYME DISEASE [None]
  - PAIN IN EXTREMITY [None]
  - PSORIATIC ARTHROPATHY [None]
  - TREATMENT NONCOMPLIANCE [None]
